FAERS Safety Report 18437007 (Version 7)
Quarter: 2024Q4

REPORT INFORMATION
  Report Type: Spontaneous
  Country: US (occurrence: US)
  Receive Date: 20201028
  Receipt Date: 20241115
  Transmission Date: 20250115
  Serious: No
  Sender: DAIICHI
  Company Number: None

PATIENT
  Sex: Male
  Weight: 95.692 kg

DRUGS (3)
  1. TURALIO [Suspect]
     Active Substance: PEXIDARTINIB HYDROCHLORIDE
     Indication: Synovitis
     Dosage: 2 DF, BID
     Route: 048
     Dates: start: 20200909, end: 2020
  2. TURALIO [Suspect]
     Active Substance: PEXIDARTINIB HYDROCHLORIDE
     Indication: Polyarthritis
     Dosage: 2 DF, BID
     Route: 048
     Dates: start: 2020
  3. TURALIO [Suspect]
     Active Substance: PEXIDARTINIB HYDROCHLORIDE
     Dosage: 2 200MG CAPSULES EACH MORNING AND 2 200MG CAPSULES EACH EVENING, MG
     Route: 048
     Dates: start: 20200909

REACTIONS (6)
  - Weight increased [Unknown]
  - Pruritus [Recovered/Resolved]
  - Therapy cessation [Unknown]
  - Off label use [Unknown]
  - Product dose omission issue [Unknown]
  - Off label use [Unknown]

NARRATIVE: CASE EVENT DATE: 20200101
